FAERS Safety Report 7473542-2 (Version None)
Quarter: 2011Q2

REPORT INFORMATION
  Report Type: 
  Country: None (occurrence: None)
  Receive Date: 20110511
  Receipt Date: 20110428
  Transmission Date: 20111010
  Serious: Yes (Other)
  Sender: FDA-Public Use
  Company Number: JP-MERCK-1105USA01441

PATIENT

DRUGS (2)
  1. ARICEPT [Concomitant]
     Indication: DEMENTIA
     Dosage: DAILY DOSE UNKNOWN
     Route: 048
  2. FOSAMAX [Suspect]
     Dosage: DAILY DOSE UNKNOWN
     Route: 048
     Dates: start: 20110424

REACTIONS (3)
  - PYREXIA [None]
  - DEMENTIA [None]
  - ASTHENIA [None]
